FAERS Safety Report 21230239 (Version 1)
Quarter: 2022Q3

REPORT INFORMATION
  Report Type: Spontaneous
  Country: CN (occurrence: CN)
  Receive Date: 20220818
  Receipt Date: 20220818
  Transmission Date: 20221027
  Serious: Yes (Disabling)
  Sender: FDA-Public Use
  Company Number: CN-009507513-2208CHN006658

PATIENT
  Age: 59 Year
  Sex: Male
  Weight: 52 kg

DRUGS (3)
  1. KEYTRUDA [Suspect]
     Active Substance: PEMBROLIZUMAB
     Indication: Lung neoplasm malignant
     Dosage: 200 MG, 1 TIME IN A DAY
     Route: 041
     Dates: start: 20220808, end: 20220809
  2. PARAPLATIN [Suspect]
     Active Substance: CARBOPLATIN
     Indication: Lung neoplasm malignant
     Dosage: 0.42G, 1 TIME IN A DAY
     Route: 041
     Dates: start: 20220808, end: 20220808
  3. PACLITAXEL [Suspect]
     Active Substance: PACLITAXEL
     Indication: Lung neoplasm malignant
     Dosage: 400 MG, 1 TIME IN A DAY
     Route: 041
     Dates: start: 20220808, end: 20220809

REACTIONS (2)
  - Alanine aminotransferase increased [Unknown]
  - Aspartate aminotransferase increased [Unknown]

NARRATIVE: CASE EVENT DATE: 20220810
